FAERS Safety Report 6968890-6 (Version None)
Quarter: 2010Q3

REPORT INFORMATION
  Report Type: 
  Country: None (occurrence: None)
  Receive Date: 20100907
  Receipt Date: 20100826
  Transmission Date: 20110219
  Serious: Yes (Hospitalization)
  Sender: FDA-Public Use
  Company Number: FR-PFIZER INC-2010107489

PATIENT
  Age: 28 Year
  Sex: Female

DRUGS (6)
  1. LYRICA [Suspect]
     Dosage: 300 MG DAILY
     Route: 048
     Dates: start: 20100127, end: 20100211
  2. DEBRIDAT [Suspect]
     Dosage: 30 ML, 3X/DAY
     Route: 048
     Dates: start: 20100127, end: 20100211
  3. BACTRIM DS [Suspect]
     Dosage: 2 DF, 2X/DAY
     Route: 048
     Dates: start: 20100204, end: 20100211
  4. FORLAX [Suspect]
     Dosage: 2 DF, 1X/DAY
     Route: 048
     Dates: start: 20100127, end: 20100211
  5. STILNOX [Suspect]
     Dosage: 1 DF, 1X/DAY
     Route: 048
     Dates: start: 20100125, end: 20100211
  6. DAFALGAN CODEINE [Suspect]
     Dosage: 1 G, 4X/DAY
     Route: 048
     Dates: start: 20100127, end: 20100211

REACTIONS (4)
  - AGRANULOCYTOSIS [None]
  - CHILLS [None]
  - HYPOTENSION [None]
  - PYREXIA [None]
